FAERS Safety Report 6174042-2 (Version None)
Quarter: 2009Q2

REPORT INFORMATION
  Report Type: 
  Country: None (occurrence: None)
  Receive Date: 20090430
  Receipt Date: 20080229
  Transmission Date: 20091009
  Serious: No
  Sender: FDA-Public Use
  Company Number: US-ASTRAZENECA-2008UW04200

PATIENT
  Age: 76 Year
  Sex: Female
  Weight: 72.6 kg

DRUGS (5)
  1. NEXIUM [Suspect]
     Route: 048
  2. WATER PILLS [Concomitant]
  3. CHOLESTEROL PILLS [Concomitant]
  4. PAIN PILLS [Concomitant]
  5. CALCIUM [Concomitant]

REACTIONS (2)
  - DIARRHOEA [None]
  - GASTRIC DISORDER [None]
